FAERS Safety Report 4732646-5 (Version None)
Quarter: 2005Q3

REPORT INFORMATION
  Report Type: 
  Country: None (occurrence: None)
  Receive Date: 20050802
  Receipt Date: 20050802
  Transmission Date: 20060218
  Serious: Yes (Hospitalization)
  Sender: FDA-Public Use
  Company Number: None

PATIENT
  Age: 73 Year
  Sex: Male
  Weight: 82 kg

DRUGS (4)
  1. GATIFLOXACIN [Suspect]
     Indication: PROPHYLAXIS
     Dosage: PO 400 MG
     Route: 048
  2. AMOXICILLIN [Concomitant]
  3. SIMVASTATIN [Concomitant]
  4. LISINOPRIL [Concomitant]

REACTIONS (4)
  - FEELING HOT [None]
  - LOSS OF CONSCIOUSNESS [None]
  - SYNCOPE [None]
  - VISION BLURRED [None]
